FAERS Safety Report 24560832 (Version 2)
Quarter: 2024Q4

REPORT INFORMATION
  Report Type: Spontaneous
  Country: NL (occurrence: NL)
  Receive Date: 20241029
  Receipt Date: 20241113
  Transmission Date: 20250115
  Serious: Yes (Disabling)
  Sender: PFIZER
  Company Number: None

PATIENT
  Age: 61 Year
  Sex: Female
  Weight: 86 kg

DRUGS (7)
  1. CLINDAMYCIN HYDROCHLORIDE [Suspect]
     Active Substance: CLINDAMYCIN HYDROCHLORIDE
     Indication: Vulval abscess
     Dosage: 300 MG
     Route: 048
     Dates: start: 20231217, end: 20240117
  2. CIPROFLOXACIN [Suspect]
     Active Substance: CIPROFLOXACIN
     Indication: Vulval abscess
     Dosage: 500 MG, 2X/DAY
     Route: 048
     Dates: start: 20231217, end: 20240117
  3. PIPERACILLIN SODIUM\TAZOBACTAM SODIUM [Suspect]
     Active Substance: PIPERACILLIN SODIUM\TAZOBACTAM SODIUM
     Indication: Vulval abscess
     Dosage: 500 MG, 3X/DAY, INFUSION
     Dates: start: 20231211, end: 20231217
  4. METFORMIN [Concomitant]
     Active Substance: METFORMIN HYDROCHLORIDE
     Dosage: UNK
  5. GLICLAZIDE-80 [Concomitant]
     Dosage: UNK
  6. RYBELSUS [Concomitant]
     Active Substance: SEMAGLUTIDE
     Dosage: UNK
  7. COSOPT [Concomitant]
     Active Substance: DORZOLAMIDE HYDROCHLORIDE\TIMOLOL MALEATE
     Dosage: UNK

REACTIONS (2)
  - Optic neuropathy [Not Recovered/Not Resolved]
  - Angle closure glaucoma [Not Recovered/Not Resolved]

NARRATIVE: CASE EVENT DATE: 20231201
